FAERS Safety Report 13189095 (Version 1)
Quarter: 2017Q1

REPORT INFORMATION
  Report Type: Spontaneous
  Country: US (occurrence: US)
  Receive Date: 20170203
  Receipt Date: 20170203
  Transmission Date: 20170428
  Serious: Yes (Hospitalization)
  Sender: FDA-Public Use
  Company Number: None

PATIENT
  Age: 74 Year
  Sex: Male
  Weight: 106.7 kg

DRUGS (1)
  1. OXYBUTYNIN [Suspect]
     Active Substance: OXYBUTYNIN
     Dates: start: 20160404, end: 20160616

REACTIONS (3)
  - Acute kidney injury [None]
  - Urinary retention [None]
  - Dehydration [None]

NARRATIVE: CASE EVENT DATE: 20160912
